FAERS Safety Report 18802468 (Version 6)
Quarter: 2021Q2

REPORT INFORMATION
  Report Type: Spontaneous
  Country: BR (occurrence: BR)
  Receive Date: 20210128
  Receipt Date: 20210412
  Transmission Date: 20210717
  Serious: Yes (Hospitalization, Other)
  Sender: FDA-Public Use
  Company Number: BR-SA-2021SA024210

PATIENT
  Age: 68 Year
  Sex: Female
  Weight: 79.8 kg

DRUGS (11)
  1. METOPROLOL. [Concomitant]
     Active Substance: METOPROLOL
     Indication: ISCHAEMIC HEART DISEASE PROPHYLAXIS
     Dosage: UNK, QD
     Route: 048
     Dates: start: 202007
  2. PENTOXIFYLLINE. [Concomitant]
     Active Substance: PENTOXIFYLLINE
     Indication: PAIN IN EXTREMITY
  3. AAS [Concomitant]
     Active Substance: ASPIRIN
     Indication: ANTICOAGULANT THERAPY
     Dosage: UNK, QD
     Route: 048
     Dates: start: 201907
  4. LANTUS [Suspect]
     Active Substance: INSULIN GLARGINE
     Indication: DIABETES MELLITUS
     Dosage: 22UI IN THE MORNING, 8UI IN THE AFTERNOON AND 20UI IN THE EVENING
     Route: 065
  5. LANTUS [Suspect]
     Active Substance: INSULIN GLARGINE
     Dosage: 2 TO 3 TIMES A DAY
     Route: 058
     Dates: start: 202001
  6. CILOSTAZOL. [Concomitant]
     Active Substance: CILOSTAZOL
     Indication: CARDIOVASCULAR DISORDER
     Dosage: UNK, BID
     Route: 048
     Dates: start: 2019
  7. CILOSTAZOL. [Concomitant]
     Active Substance: CILOSTAZOL
     Indication: PAIN IN EXTREMITY
  8. NESINA [Concomitant]
     Active Substance: ALOGLIPTIN BENZOATE
     Dosage: UNK
     Route: 065
  9. LOSARTAN. [Concomitant]
     Active Substance: LOSARTAN
     Indication: HYPERTENSION
     Dosage: UNK UNK, BID
     Route: 048
     Dates: start: 202007
  10. PENTOXIFYLLINE. [Concomitant]
     Active Substance: PENTOXIFYLLINE
     Indication: SCAR
     Dosage: UNK, BID
     Route: 048
     Dates: start: 2019
  11. SINVASTATINA [Concomitant]
     Active Substance: SIMVASTATIN
     Indication: BLOOD CHOLESTEROL ABNORMAL
     Dosage: 2 DF, QD
     Route: 048
     Dates: start: 2019

REACTIONS (22)
  - Myocardial infarction [Unknown]
  - Gait inability [Unknown]
  - COVID-19 [Unknown]
  - Pollakiuria [Unknown]
  - Pain in extremity [Unknown]
  - Angina pectoris [Unknown]
  - Suspected product quality issue [Unknown]
  - Sleep disorder [Unknown]
  - Intentional product misuse [Unknown]
  - Pyrexia [Unknown]
  - Sluggishness [Unknown]
  - Blood glucose increased [Unknown]
  - Product storage error [Unknown]
  - Asthenia [Not Recovered/Not Resolved]
  - Feeling abnormal [Unknown]
  - Feeling abnormal [Unknown]
  - Drug ineffective [Unknown]
  - Multiple use of single-use product [Unknown]
  - Chest pain [Unknown]
  - Discomfort [Unknown]
  - Localised infection [Unknown]
  - Off label use [Unknown]

NARRATIVE: CASE EVENT DATE: 2019
